FAERS Safety Report 11534595 (Version 1)
Quarter: 2015Q3

REPORT INFORMATION
  Report Type: Spontaneous
  Country: US (occurrence: None)
  Receive Date: 20150921
  Receipt Date: 20150921
  Transmission Date: 20151125
  Serious: Yes (Death)
  Sender: FDA-Public Use
  Company Number: None

PATIENT
  Age: 51 Year
  Sex: Male
  Weight: 127.01 kg

DRUGS (11)
  1. ACITRETIN 25MG PRASCO [Suspect]
     Active Substance: ACITRETIN
     Indication: PAIN
     Dosage: 1 PILL TWICE DAILY TAKEN BY MOUTH
     Route: 048
     Dates: start: 20131101, end: 20131206
  2. METRONIDAZOLE. [Concomitant]
     Active Substance: METRONIDAZOLE
  3. B COMPLEX-BIOTIN-FA [Concomitant]
  4. ACITRETIN 25MG PRASCO [Suspect]
     Active Substance: ACITRETIN
     Indication: PUSTULAR PSORIASIS
     Dosage: 1 PILL TWICE DAILY TAKEN BY MOUTH
     Route: 048
     Dates: start: 20131101, end: 20131206
  5. CRESTOR [Concomitant]
     Active Substance: ROSUVASTATIN CALCIUM
  6. METFORMIN [Concomitant]
     Active Substance: METFORMIN HYDROCHLORIDE
  7. IBUPROFEN. [Concomitant]
     Active Substance: IBUPROFEN
  8. ZESTRIL [Concomitant]
     Active Substance: LISINOPRIL
  9. PRINIVIL [Concomitant]
     Active Substance: LISINOPRIL
  10. PSORCON [Concomitant]
     Active Substance: DIFLORASONE DIACETATE
  11. VITAMIN D3 [Concomitant]
     Active Substance: CHOLECALCIFEROL

REACTIONS (3)
  - Pulmonary embolism [None]
  - Sudden death [None]
  - Therapy change [None]

NARRATIVE: CASE EVENT DATE: 20131206
